FAERS Safety Report 25413771 (Version 1)
Quarter: 2025Q2

REPORT INFORMATION
  Report Type: Spontaneous
  Country: US (occurrence: None)
  Receive Date: 20250607
  Receipt Date: 20250607
  Transmission Date: 20250716
  Serious: Yes (Other)
  Sender: FDA-CTU
  Company Number: None

PATIENT
  Age: 66 Year
  Sex: Female
  Weight: 74.25 kg

DRUGS (10)
  1. CIPROFLOXACIN [Suspect]
     Active Substance: CIPROFLOXACIN
     Indication: Urinary tract infection
     Dosage: FREQUENCY : TWICE A DAY;?
     Route: 048
     Dates: start: 20250520, end: 20250526
  2. TACROLIMUS [Concomitant]
     Active Substance: TACROLIMUS
  3. FUROSEMIDE [Concomitant]
     Active Substance: FUROSEMIDE
  4. GABAPENTIN [Concomitant]
     Active Substance: GABAPENTIN
  5. LEVOTHYROXINE [Concomitant]
     Active Substance: LEVOTHYROXINE
  6. CALCITRIOL [Concomitant]
     Active Substance: CALCITRIOL
  7. ASPIRIN [Concomitant]
     Active Substance: ASPIRIN
  8. MINERALS\VITAMINS [Concomitant]
     Active Substance: MINERALS\VITAMINS
  9. Osteo-K [Concomitant]
  10. CRANBERRY [Concomitant]
     Active Substance: CRANBERRY

REACTIONS (2)
  - Arthralgia [None]
  - Musculoskeletal stiffness [None]

NARRATIVE: CASE EVENT DATE: 20250528
